FAERS Safety Report 16960535 (Version 3)
Quarter: 2022Q2

REPORT INFORMATION
  Report Type: Spontaneous
  Country: US (occurrence: US)
  Receive Date: 20191025
  Receipt Date: 20220429
  Transmission Date: 20220720
  Serious: No
  Sender: FDA-Public Use
  Company Number: US-PFIZER INC-2019462507

PATIENT
  Age: 65 Year
  Sex: Female
  Weight: 77.11 kg

DRUGS (3)
  1. LYRICA [Suspect]
     Active Substance: PREGABALIN
     Indication: Pain
     Dosage: 300 MG, DAILY (100MG ONE CAPSULE IN MORNING AND TWO AT NIGHT)
     Route: 048
     Dates: start: 2014
  2. LYRICA [Suspect]
     Active Substance: PREGABALIN
     Indication: Fibromyalgia
     Dosage: UNK
  3. LYRICA [Suspect]
     Active Substance: PREGABALIN
     Indication: Neuralgia

REACTIONS (4)
  - Depression [Unknown]
  - Pain [Unknown]
  - Intentional product misuse [Unknown]
  - Memory impairment [Unknown]
